FAERS Safety Report 8122407-1 (Version None)
Quarter: 2012Q1

REPORT INFORMATION
  Report Type: 
  Country: None (occurrence: None)
  Receive Date: 20120208
  Receipt Date: 20120110
  Transmission Date: 20120608
  Serious: Yes (Hospitalization)
  Sender: FDA-Public Use
  Company Number: JP-GLAXOSMITHKLINE-B0775016A

PATIENT
  Age: 42 Year
  Sex: Female

DRUGS (16)
  1. SEROQUEL [Concomitant]
     Indication: MOOD ALTERED
     Dosage: 75MG PER DAY
     Route: 048
  2. SEROQUEL [Concomitant]
     Indication: RESTLESSNESS
     Dosage: 25MG PER DAY
     Route: 048
  3. LENDORMIN [Concomitant]
     Indication: INSOMNIA
     Dosage: .25MG PER DAY
     Route: 048
  4. LAMICTAL [Suspect]
     Indication: BIPOLAR II DISORDER
     Dosage: 25MG PER DAY
     Route: 048
     Dates: start: 20111220, end: 20111226
  5. U PAN [Concomitant]
     Indication: ANXIETY
     Dosage: 1.5MG PER DAY
     Route: 048
  6. LAMICTAL [Suspect]
     Dosage: 50MG PER DAY
     Route: 048
     Dates: start: 20111227, end: 20120108
  7. PL [Suspect]
     Route: 048
  8. ACETAMINOPHEN [Suspect]
     Route: 048
  9. DEZOLAM [Concomitant]
     Indication: ANXIETY
     Dosage: 1MG PER DAY
     Route: 048
  10. UNKNOWN [Concomitant]
     Dosage: 150MG PER DAY
     Route: 048
  11. SEROQUEL [Concomitant]
     Dosage: 200MG PER DAY
     Route: 048
  12. CLONAZEPAM [Concomitant]
     Indication: MOOD ALTERED
     Dosage: 1MG PER DAY
     Route: 048
  13. DEPAS [Concomitant]
     Route: 048
  14. UNKNOWN DRUG [Concomitant]
     Dosage: 1.5G PER DAY
     Route: 048
  15. FLUVOXAMINE MALEATE [Concomitant]
     Indication: DEPRESSION
     Dosage: 50MG PER DAY
     Route: 048
  16. DESYREL [Concomitant]
     Indication: SLEEP DISORDER
     Dosage: 150MG PER DAY
     Route: 048

REACTIONS (7)
  - ASTHENIA [None]
  - STEVENS-JOHNSON SYNDROME [None]
  - PYREXIA [None]
  - RASH [None]
  - HYPERSENSITIVITY [None]
  - DRUG ERUPTION [None]
  - ECZEMA [None]
